FAERS Safety Report 10297695 (Version 1)
Quarter: 2014Q3

REPORT INFORMATION
  Report Type: Spontaneous
  Country: DK (occurrence: FR)
  Receive Date: 20140711
  Receipt Date: 20140711
  Transmission Date: 20150326
  Serious: Yes (Hospitalization, Other)
  Sender: FDA-Public Use
  Company Number: FR-FRI-1000068834

PATIENT
  Age: 72 Year
  Sex: Female

DRUGS (13)
  1. ESCITALOPRAM [Suspect]
     Active Substance: ESCITALOPRAM OXALATE
     Dosage: 40 MG
     Route: 048
     Dates: start: 20140603
  2. ESOMEPRAZOLE [Concomitant]
     Active Substance: ESOMEPRAZOLE
     Dosage: 20 MG
  3. ESCITALOPRAM [Suspect]
     Active Substance: ESCITALOPRAM OXALATE
     Dosage: OVERDOSE: 40 MG DAILY.
     Route: 048
     Dates: end: 20140522
  4. STILNOX [Suspect]
     Active Substance: ZOLPIDEM TARTRATE
     Dosage: 40 MG
     Route: 048
     Dates: end: 20140523
  5. STILNOX [Suspect]
     Active Substance: ZOLPIDEM TARTRATE
     Dosage: 40 MG
     Route: 048
     Dates: start: 20140603
  6. TEMESTA [Suspect]
     Active Substance: LORAZEPAM
     Route: 048
     Dates: end: 20140522
  7. ESCITALOPRAM [Suspect]
     Active Substance: ESCITALOPRAM OXALATE
     Dosage: 10 MG
     Route: 048
     Dates: start: 20140523
  8. TEMESTA [Suspect]
     Active Substance: LORAZEPAM
     Dosage: 7.5 MG
     Route: 048
     Dates: start: 20140603
  9. LYSANXIA [Suspect]
     Active Substance: PRAZEPAM
     Dosage: 1 MG
     Route: 048
     Dates: end: 20140523
  10. LYSANXIA [Suspect]
     Active Substance: PRAZEPAM
     Dosage: 1 MG
     Route: 048
     Dates: start: 20140603
  11. TAHOR [Concomitant]
     Active Substance: ATORVASTATIN CALCIUM
     Dosage: 40 MG
  12. LEVOTHYROX [Concomitant]
     Active Substance: LEVOTHYROXINE
  13. TEMESTA [Suspect]
     Active Substance: LORAZEPAM
     Dosage: 3.75 MG
     Route: 048
     Dates: start: 20140523

REACTIONS (5)
  - Hyperhidrosis [Recovered/Resolved]
  - Malaise [Recovered/Resolved]
  - Overdose [Not Recovered/Not Resolved]
  - Drug withdrawal syndrome [Recovered/Resolved]
  - Dizziness [Recovered/Resolved]

NARRATIVE: CASE EVENT DATE: 20140531
